FAERS Safety Report 16342894 (Version 1)
Quarter: 2019Q2

REPORT INFORMATION
  Report Type: Spontaneous
  Country: IT (occurrence: IT)
  Receive Date: 20190522
  Receipt Date: 20190522
  Transmission Date: 20190711
  Serious: Yes (Other)
  Sender: FDA-Public Use
  Company Number: IT-PFIZER INC-2019210913

PATIENT
  Age: 28 Year
  Sex: Female

DRUGS (1)
  1. CEFAZOLIN [Suspect]
     Active Substance: CEFAZOLIN
     Indication: NASAL SEPTAL OPERATION
     Dosage: 1 G, TOTAL
     Route: 030
     Dates: start: 20190416, end: 20190416

REACTIONS (5)
  - Presyncope [Recovering/Resolving]
  - Product use in unapproved indication [Unknown]
  - Abdominal pain upper [Recovering/Resolving]
  - Injection site pain [Recovering/Resolving]
  - Off label use [Unknown]

NARRATIVE: CASE EVENT DATE: 20190416
